FAERS Safety Report 4315306-4 (Version None)
Quarter: 2004Q1

REPORT INFORMATION
  Report Type: 
  Country: None (occurrence: None)
  Receive Date: 20040311
  Receipt Date: 20040211
  Transmission Date: 20041129
  Serious: Yes (Other)
  Sender: FDA-Public Use
  Company Number: 200411999GDDC

PATIENT
  Age: 34 Year
  Sex: Female

DRUGS (1)
  1. CLOMID [Suspect]
     Indication: INFERTILITY
     Route: 048

REACTIONS (2)
  - OLIGOMENORRHOEA [None]
  - PREGNANCY TEST NEGATIVE [None]
